FAERS Safety Report 6029507-0 (Version None)
Quarter: 2009Q1

REPORT INFORMATION
  Report Type: 
  Country: None (occurrence: None)
  Receive Date: 20090106
  Receipt Date: 20081226
  Transmission Date: 20090719
  Serious: Yes (Other)
  Sender: FDA-Public Use
  Company Number: US-PFIZER INC-2008031659

PATIENT
  Sex: Male
  Weight: 155 kg

DRUGS (15)
  1. CHANTIX [Suspect]
     Route: 048
     Dates: start: 20080312, end: 20080901
  2. ALEVE [Concomitant]
     Indication: ARTHRITIS
     Route: 048
  3. GOODYS POWDERS [Concomitant]
     Indication: ARTHRITIS
     Route: 048
  4. CLARITIN-D [Concomitant]
     Indication: SINUS DISORDER
     Route: 048
  5. THORAZINE [Concomitant]
     Indication: BIPOLAR DISORDER
     Route: 048
  6. ROBITUSSIN-DM [Concomitant]
     Indication: SINUS DISORDER
  7. CLARITIN [Concomitant]
     Indication: SINUS DISORDER
  8. LITHIUM [Concomitant]
     Indication: BIPOLAR DISORDER
     Route: 048
  9. VITAMIN B-12 [Concomitant]
     Indication: BIPOLAR DISORDER
  10. MULTI-VITAMINS [Concomitant]
     Indication: PROSTATIC DISORDER
  11. ALL OTHER THERAPEUTIC PRODUCTS [Concomitant]
  12. ANACIN [Concomitant]
  13. CLARITIN-D [Concomitant]
  14. CHLORPROMAZINE [Concomitant]
  15. ONE-A-DAY [Concomitant]

REACTIONS (5)
  - AGGRESSION [None]
  - AGITATION [None]
  - ARTHRITIS [None]
  - DEPRESSION [None]
  - SUICIDAL BEHAVIOUR [None]
